FAERS Safety Report 16771758 (Version 1)
Quarter: 2019Q3

REPORT INFORMATION
  Report Type: Spontaneous
  Country: CA (occurrence: CA)
  Receive Date: 20190904
  Receipt Date: 20190904
  Transmission Date: 20191005
  Serious: Yes (Other)
  Sender: FDA-Public Use
  Company Number: CA-PFIZER INC-2019375710

PATIENT
  Age: 73 Year
  Sex: Female

DRUGS (5)
  1. ROSUVASTATIN. [Concomitant]
     Active Substance: ROSUVASTATIN
     Dosage: UNK
  2. TIMOPTIC [Concomitant]
     Active Substance: TIMOLOL MALEATE
     Dosage: UNK
  3. ZOLEDRONIC ACID [Suspect]
     Active Substance: ZOLEDRONIC ACID
     Indication: OSTEOPOROSIS
     Dosage: 100 ML, UNK [1 EVERY 1YEAR(S)]
     Route: 042
  4. LATANOPROST. [Concomitant]
     Active Substance: LATANOPROST
     Dosage: UNK
  5. BISOPROLOL [Concomitant]
     Active Substance: BISOPROLOL
     Dosage: UNK

REACTIONS (3)
  - Procollagen type I C-terminal propeptide increased [Unknown]
  - Off label use [Unknown]
  - Product use in unapproved indication [Unknown]
